FAERS Safety Report 4775125-1 (Version None)
Quarter: 2005Q3

REPORT INFORMATION
  Report Type: 
  Country: None (occurrence: None)
  Receive Date: 20050920
  Receipt Date: 20050912
  Transmission Date: 20060218
  Serious: Yes (Hospitalization, Other)
  Sender: FDA-Public Use
  Company Number: 2005122953

PATIENT
  Age: 59 Year
  Sex: Female
  Weight: 58.514 kg

DRUGS (8)
  1. GENOTROPIN [Suspect]
     Indication: HYPOPITUITARISM
     Dosage: SEE IMAGE
     Route: 058
     Dates: start: 20040101, end: 20050801
  2. GENOTROPIN [Suspect]
     Indication: OVARIAN FAILURE
     Dosage: SEE IMAGE
     Route: 058
     Dates: start: 20040101, end: 20050801
  3. GENOTROPIN [Suspect]
     Indication: HYPOPITUITARISM
     Dosage: SEE IMAGE
     Route: 058
     Dates: start: 20050801, end: 20050826
  4. GENOTROPIN [Suspect]
     Indication: OVARIAN FAILURE
     Dosage: SEE IMAGE
     Route: 058
     Dates: start: 20050801, end: 20050826
  5. ESTROGEN W/MEDROXYPROGESTERON (ESTRONE, MEDROXYPROGESTERONE) [Concomitant]
  6. LASIX [Concomitant]
  7. POTASSIUM (POTASSIUM) [Concomitant]
  8. LISINOPRIL [Concomitant]

REACTIONS (9)
  - ALANINE AMINOTRANSFERASE INCREASED [None]
  - AMNESIA [None]
  - CARPAL TUNNEL SYNDROME [None]
  - DRUG LEVEL DECREASED [None]
  - FEELING ABNORMAL [None]
  - LIVER FUNCTION TEST ABNORMAL [None]
  - PAIN [None]
  - PAIN IN EXTREMITY [None]
  - PANCREATITIS ACUTE [None]
